FAERS Safety Report 5445078-1 (Version None)
Quarter: 2007Q3

REPORT INFORMATION
  Report Type: 
  Country: None (occurrence: None)
  Receive Date: 20070906
  Receipt Date: 20070827
  Transmission Date: 20080115
  Serious: Yes (Other)
  Sender: FDA-Public Use
  Company Number: US-PFIZER INC-2007072943

PATIENT
  Sex: Female
  Weight: 76.818 kg

DRUGS (5)
  1. CHANTIX [Suspect]
     Indication: SMOKING CESSATION THERAPY
  2. FISH OIL [Concomitant]
  3. LIPITOR [Concomitant]
  4. CENTRUM SILVER [Concomitant]
  5. CALCIUM [Concomitant]

REACTIONS (3)
  - ANGER [None]
  - ILL-DEFINED DISORDER [None]
  - MOOD ALTERED [None]
